FAERS Safety Report 21663210 (Version 1)
Quarter: 2022Q4

REPORT INFORMATION
  Report Type: Spontaneous
  Country: US (occurrence: US)
  Receive Date: 20221130
  Receipt Date: 20221130
  Transmission Date: 20230113
  Serious: Yes (Hospitalization, Other)
  Sender: FDA-Public Use
  Company Number: US-GLAXOSMITHKLINE-US2022GSK177447

PATIENT

DRUGS (1)
  1. VALACYCLOVIR [Suspect]
     Active Substance: VALACYCLOVIR HYDROCHLORIDE
     Indication: Herpes zoster
     Dosage: 1000 MG, TID

REACTIONS (11)
  - Neurotoxicity [Unknown]
  - Confusional state [Recovered/Resolved]
  - Hypertension [Unknown]
  - Hypothermia [Unknown]
  - Hallucination [Recovered/Resolved]
  - Disorientation [Recovered/Resolved]
  - Leukocytosis [Unknown]
  - Condition aggravated [Recovered/Resolved]
  - Encephalopathy [Unknown]
  - Mental status changes [Recovered/Resolved]
  - Extra dose administered [Unknown]
